FAERS Safety Report 11697462 (Version 7)
Quarter: 2017Q2

REPORT INFORMATION
  Report Type: Spontaneous
  Country: US (occurrence: US)
  Receive Date: 20151104
  Receipt Date: 20170529
  Transmission Date: 20170829
  Serious: No
  Sender: FDA-Public Use
  Company Number: US-PFIZER INC-2015352086

PATIENT
  Age: 69 Year
  Sex: Female
  Weight: 66 kg

DRUGS (6)
  1. IBRANCE [Suspect]
     Active Substance: PALBOCICLIB
     Dosage: 125 MG, CYCLIC[DAILYX 21 DAYS AND OFF 7 DAYS]
     Route: 048
  2. AMOXICILLIN SODIUM, CLAVULANATE POTASSIUM [Concomitant]
     Dosage: 1 DF, 2X/DAY (AMOXICILLIN TRIHYDRATE-500 MG, CLAVULANATE POTASSIUM-125 MG)
  3. IBRANCE [Suspect]
     Active Substance: PALBOCICLIB
     Dosage: 125 MG, CYCLIC (FOR 21 DAYS WITH FEMARA)
     Dates: start: 201507
  4. IBRANCE [Suspect]
     Active Substance: PALBOCICLIB
     Dosage: 125 MG, CYCLIC (QD X21D EVERY 4 WEEKS)
     Route: 048
  5. IBRANCE [Suspect]
     Active Substance: PALBOCICLIB
     Indication: BREAST CANCER FEMALE
     Dosage: 125 MG, CYCLIC (125MG 1 CAPSULE BY MOUTH DAILY WITH FOOD FOR 21 DAYS FOLLOWED BY 7 DAYS OFF)
     Route: 048
     Dates: start: 201507
  6. FEMARA [Concomitant]
     Active Substance: LETROZOLE
     Indication: BREAST CANCER METASTATIC
     Dosage: 2.5 MG, 1X/DAY (FOR 30 DAYS)
     Dates: start: 201507

REACTIONS (7)
  - Cough [Recovered/Resolved]
  - White blood cell count decreased [Unknown]
  - Malaise [Recovered/Resolved]
  - Laryngitis [Recovered/Resolved]
  - Viral upper respiratory tract infection [Recovered/Resolved]
  - Chest discomfort [Recovered/Resolved]
  - Alopecia [Unknown]

NARRATIVE: CASE EVENT DATE: 20151031
